FAERS Safety Report 13489075 (Version 1)
Quarter: 2017Q2

REPORT INFORMATION
  Report Type: Spontaneous
  Country: US (occurrence: US)
  Receive Date: 20170426
  Receipt Date: 20170426
  Transmission Date: 20170830
  Serious: No
  Sender: FDA-Public Use
  Company Number: US-MAYNE PHARMA-2015MYN000289

PATIENT
  Sex: Male

DRUGS (2)
  1. CARBIDOPA/LEVODOPA [Suspect]
     Active Substance: CARBIDOPA\LEVODOPA
     Dosage: 1.5 DOSAGE FORMS DAILY; 25 MG / 100 MG
     Route: 065
     Dates: start: 2015, end: 2015
  2. CARBIDOPA/LEVODOPA [Suspect]
     Active Substance: CARBIDOPA\LEVODOPA
     Indication: PARKINSON^S DISEASE
     Dosage: .6667 DOSAGE FORMS DAILY; 25 MG / 100 MG
     Route: 065
     Dates: start: 2015, end: 2015

REACTIONS (5)
  - Product substitution issue [Recovered/Resolved]
  - Dysstasia [Recovered/Resolved]
  - Drug effect decreased [Recovered/Resolved]
  - Loss of personal independence in daily activities [Recovered/Resolved]
  - Gait disturbance [Recovered/Resolved]

NARRATIVE: CASE EVENT DATE: 201504
